FAERS Safety Report 4413438-3 (Version None)
Quarter: 2004Q3

REPORT INFORMATION
  Report Type: 
  Country: None (occurrence: None)
  Receive Date: 20040728
  Receipt Date: 20040721
  Transmission Date: 20050211
  Serious: Yes (Other)
  Sender: FDA-Public Use
  Company Number: K200401079

PATIENT
  Age: 70 Year
  Sex: Male

DRUGS (5)
  1. ALTACE [Suspect]
     Indication: HYPERTENSION
     Dosage: 1.25 MG, QD, ORAL
     Route: 048
     Dates: start: 20040629
  2. HYDROCHLOROTHIAZIDE [Concomitant]
  3. ALPHAGAN [Concomitant]
  4. BETOPTIC [Concomitant]
  5. ALLOPURINOL [Concomitant]

REACTIONS (1)
  - GOUT [None]
